FAERS Safety Report 4437668-X (Version None)
Quarter: 2004Q3

REPORT INFORMATION
  Report Type: 
  Country: None (occurrence: None)
  Receive Date: 20040831
  Receipt Date: 20040824
  Transmission Date: 20050211
  Serious: Yes (Hospitalization, Other)
  Sender: FDA-Public Use
  Company Number: 200416416US

PATIENT
  Sex: Female

DRUGS (1)
  1. ARAVA [Suspect]
     Indication: MUSCULOSKELETAL STIFFNESS
     Dosage: DOSE: UNK

REACTIONS (3)
  - INFECTION [None]
  - INTERVERTEBRAL DISC PROTRUSION [None]
  - URTICARIA [None]
